FAERS Safety Report 8881886 (Version 1)
Quarter: 2012Q4

REPORT INFORMATION
  Report Type: 
  Country: US (occurrence: US)
  Receive Date: 20121102
  Receipt Date: 20121102
  Transmission Date: 20130627
  Serious: Yes (Other)
  Sender: FDA-Public Use
  Company Number: CHPA2012US022549

PATIENT
  Age: 72 Year
  Sex: Female

DRUGS (1)
  1. MAALOX ADV MAXIMUM STRENGTH ANTACID/ANTIGAS [Suspect]
     Indication: OESOPHAGEAL ULCER
     Dosage: 4.5 TSP, 1-2 times per day
     Route: 048

REACTIONS (4)
  - Oesophageal ulcer [Unknown]
  - Off label use [Unknown]
  - Incorrect dose administered [Unknown]
  - Overdose [Unknown]
